FAERS Safety Report 9687269 (Version 2)
Quarter: 2013Q4

REPORT INFORMATION
  Report Type: Spontaneous
  Country: US (occurrence: US)
  Receive Date: 20131114
  Receipt Date: 20131212
  Transmission Date: 20140711
  Serious: Yes (Hospitalization, Other)
  Sender: FDA-Public Use
  Company Number: US-009507513-1311USA004725

PATIENT
  Age: 65 Year
  Sex: Female

DRUGS (2)
  1. VYTORIN [Suspect]
     Indication: BLOOD CHOLESTEROL INCREASED
     Dosage: 10/40MG / ONCE DAILY
     Route: 048
     Dates: start: 200811, end: 2013
  2. COUMADIN [Concomitant]

REACTIONS (2)
  - Femur fracture [Not Recovered/Not Resolved]
  - Fall [Recovered/Resolved]
